FAERS Safety Report 7234228-2 (Version None)
Quarter: 2011Q1

REPORT INFORMATION
  Report Type: 
  Country: None (occurrence: None)
  Receive Date: 20110119
  Receipt Date: 20110104
  Transmission Date: 20110831
  Serious: No
  Sender: FDA-Public Use
  Company Number: US-B.I. PHARMACEUTICALS,INC./RIDGEFIELD-2011-BP-00549BP

PATIENT
  Sex: Female

DRUGS (1)
  1. SPIRIVA [Suspect]
     Indication: CHRONIC OBSTRUCTIVE PULMONARY DISEASE
     Dosage: 0.6 MCG
     Route: 055
     Dates: start: 20100801

REACTIONS (4)
  - BLEPHAROSPASM [None]
  - DRY MOUTH [None]
  - COUGH [None]
  - DYSPHONIA [None]
